FAERS Safety Report 14540415 (Version 3)
Quarter: 2018Q2

REPORT INFORMATION
  Report Type: Spontaneous
  Country: US (occurrence: US)
  Receive Date: 20180216
  Receipt Date: 20180413
  Transmission Date: 20180711
  Serious: Yes (Other)
  Sender: FDA-Public Use
  Company Number: US-REGENERON PHARMACEUTICALS, INC.-2018-14239

PATIENT

DRUGS (2)
  1. EYLEA [Suspect]
     Active Substance: AFLIBERCEPT
     Indication: RADIATION RETINOPATHY
     Dosage: 0.05 RIGHT EYE, EVERY 4 WEEKS
     Route: 031
     Dates: start: 20160412
  2. EYLEA [Suspect]
     Active Substance: AFLIBERCEPT
     Dosage: 0.05, RIGHT EYE, LAST DOSE
     Route: 031
     Dates: start: 20180201

REACTIONS (2)
  - Nephropathy [Not Recovered/Not Resolved]
  - Off label use [Not Recovered/Not Resolved]

NARRATIVE: CASE EVENT DATE: 20161005
